FAERS Safety Report 19873077 (Version 3)
Quarter: 2021Q4

REPORT INFORMATION
  Report Type: Spontaneous
  Country: US (occurrence: US)
  Receive Date: 20210923
  Receipt Date: 20211222
  Transmission Date: 20220303
  Serious: No
  Sender: FDA-Public Use
  Company Number: US-PFIZER INC-202101103945

PATIENT
  Age: 8 Year
  Sex: Male
  Weight: 23.59 kg

DRUGS (2)
  1. GENOTROPIN [Suspect]
     Active Substance: SOMATROPIN
     Indication: Growth hormone deficiency
     Dosage: 0.06 DOSE
  2. GENOTROPIN [Suspect]
     Active Substance: SOMATROPIN
     Dosage: 0.08 DOSE UNITS NOT SPECIFIED WITH NEEDLE ONCE A DAY ON HIS BUTTOCKS, BELOW BELLY BUTTON
     Dates: start: 202107

REACTIONS (4)
  - Intentional product misuse [Unknown]
  - Drug dose omission by device [Unknown]
  - Device use issue [Unknown]
  - Expired device used [Unknown]

NARRATIVE: CASE EVENT DATE: 20210101
